FAERS Safety Report 9874746 (Version 2)
Quarter: 2014Q1

REPORT INFORMATION
  Report Type: Report from Study
  Country: CA (occurrence: CA)
  Receive Date: 20140206
  Receipt Date: 20140207
  Transmission Date: 20141002
  Serious: Yes (Death, Hospitalization)
  Sender: FDA-Public Use
  Company Number: PHHY2014CA013547

PATIENT
  Sex: Female

DRUGS (1)
  1. ACLASTA [Suspect]
     Indication: OSTEOPOROSIS
     Dosage: ONCE/YEAR
     Route: 042
     Dates: start: 20121109

REACTIONS (9)
  - Pneumonia [Fatal]
  - Urosepsis [Unknown]
  - Cystitis escherichia [Unknown]
  - Slipping rib syndrome [Unknown]
  - Compression fracture [Unknown]
  - Cognitive disorder [Unknown]
  - Supraventricular tachycardia [Unknown]
  - General physical health deterioration [Unknown]
  - Renal failure acute [Unknown]
